FAERS Safety Report 5856542-5 (Version None)
Quarter: 2008Q3

REPORT INFORMATION
  Report Type: 
  Country: None (occurrence: None)
  Receive Date: 20080822
  Receipt Date: 20080822
  Transmission Date: 20090109
  Serious: No
  Sender: FDA-Public Use
  Company Number: None

PATIENT
  Age: 50 Year
  Sex: Female
  Weight: 74.8435 kg

DRUGS (4)
  1. PRISTIQ [Suspect]
     Indication: DEPRESSION
     Dosage: 50 MG ONCE DAILY ORAL
     Route: 048
     Dates: start: 20080824, end: 20080801
  2. SUBOXONE [Concomitant]
  3. IBUPROFIN [Concomitant]
  4. DOXEPIN HCL [Concomitant]

REACTIONS (6)
  - DIPLOPIA [None]
  - GROIN PAIN [None]
  - OEDEMA PERIPHERAL [None]
  - PARAESTHESIA [None]
  - PERIPHERAL COLDNESS [None]
  - VISION BLURRED [None]
